FAERS Safety Report 6744031-5 (Version None)
Quarter: 2010Q2

REPORT INFORMATION
  Report Type: 
  Country: None (occurrence: None)
  Receive Date: 20100527
  Receipt Date: 20100521
  Transmission Date: 20101027
  Serious: Yes (Death, Hospitalization)
  Sender: FDA-Public Use
  Company Number: A0788089A

PATIENT
  Age: 58 Year
  Sex: Female

DRUGS (12)
  1. AVANDIA [Suspect]
     Indication: DIABETES MELLITUS
     Dosage: 8MG PER DAY
     Route: 048
     Dates: start: 20040601, end: 20070301
  2. AVANDAMET [Suspect]
     Route: 048
     Dates: start: 20050301, end: 20060401
  3. GLUCOVANCE [Concomitant]
     Dates: start: 20040801
  4. HUMALOG [Concomitant]
  5. ZOLOFT [Concomitant]
  6. ATIVAN [Concomitant]
  7. PREDNISONE TAB [Concomitant]
  8. CELLCEPT [Concomitant]
  9. PROGRAF [Concomitant]
  10. PRAVACHOL [Concomitant]
  11. LANOXIN [Concomitant]
  12. PREVACID [Concomitant]

REACTIONS (4)
  - CARDIAC FAILURE CONGESTIVE [None]
  - CARDIO-RESPIRATORY ARREST [None]
  - MYOCARDIAL INFARCTION [None]
  - RENAL FAILURE [None]
